FAERS Safety Report 10490043 (Version 1)
Quarter: 2014Q3

REPORT INFORMATION
  Report Type: Spontaneous
  Country: US (occurrence: None)
  Receive Date: 20140815
  Receipt Date: 20140815
  Transmission Date: 20150326
  Serious: Yes (Other)
  Sender: FDA-Public Use
  Company Number: ADR-2013-01198

PATIENT
  Age: 52 Year
  Sex: Female

DRUGS (3)
  1. DROPERIDOL (INASPINE) - 0.2 MG/ML, 0.07321 MG/DAY [Concomitant]
  2. FENTANYL INTRATHECAL [Suspect]
     Active Substance: FENTANYL
  3. BACLOFEN INTRATHECAL [Suspect]
     Active Substance: BACLOFEN
     Indication: PAIN

REACTIONS (2)
  - Nausea [None]
  - Vomiting [None]

NARRATIVE: CASE EVENT DATE: 20130703
